FAERS Safety Report 10482222 (Version 4)
Quarter: 2015Q1

REPORT INFORMATION
  Report Type: Report from Study
  Country: US (occurrence: US)
  Receive Date: 20140929
  Receipt Date: 20150205
  Transmission Date: 20150720
  Serious: Yes (Other)
  Sender: FDA-Public Use
  Company Number: US-SA-2014SA009214

PATIENT
  Age: 52 Year
  Sex: Female
  Weight: 96.1 kg

DRUGS (5)
  1. AUBAGIO [Suspect]
     Active Substance: TERIFLUNOMIDE
     Indication: MULTIPLE SCLEROSIS
     Route: 048
     Dates: start: 20131226, end: 20140527
  2. INSULIN [Concomitant]
     Active Substance: INSULIN NOS
     Indication: TYPE 2 DIABETES MELLITUS
  3. AZATHIOPRINE. [Concomitant]
     Active Substance: AZATHIOPRINE
  4. AUBAGIO [Suspect]
     Active Substance: TERIFLUNOMIDE
     Indication: MULTIPLE SCLEROSIS
     Route: 048
     Dates: start: 201407, end: 20141107
  5. PREDNISONE. [Concomitant]
     Active Substance: PREDNISONE

REACTIONS (22)
  - Gout [Unknown]
  - Tremor [Unknown]
  - Therapeutic response unexpected [Unknown]
  - Arthralgia [Unknown]
  - Depression [Unknown]
  - Memory impairment [Unknown]
  - Pain in extremity [Unknown]
  - Multiple sclerosis [Unknown]
  - Leukopenia [Recovered/Resolved]
  - Oedema peripheral [Recovering/Resolving]
  - Blood glucose increased [Recovering/Resolving]
  - Peripheral swelling [Unknown]
  - Ill-defined disorder [Recovering/Resolving]
  - Peripheral swelling [Unknown]
  - Contusion [Unknown]
  - Fall [Unknown]
  - White blood cell count decreased [Unknown]
  - Pulmonary mass [Unknown]
  - Erythema [Unknown]
  - Glycosylated haemoglobin decreased [Unknown]
  - Tendonitis [Unknown]
  - Neutropenia [Recovered/Resolved]

NARRATIVE: CASE EVENT DATE: 2014
